FAERS Safety Report 5569487-5 (Version None)
Quarter: 2007Q4

REPORT INFORMATION
  Report Type: 
  Country: None (occurrence: None)
  Receive Date: 20071220
  Receipt Date: 20071211
  Transmission Date: 20080405
  Serious: Yes (Other)
  Sender: FDA-Public Use
  Company Number: AT-JNJFOC-20071202952

PATIENT
  Sex: Male

DRUGS (1)
  1. ORTHO EVRA [Suspect]
     Indication: DRUG EXPOSURE DURING PREGNANCY

REACTIONS (3)
  - DIARRHOEA [None]
  - HEREDITARY FRUCTOSE INTOLERANCE [None]
  - PSYCHOMOTOR HYPERACTIVITY [None]
